FAERS Safety Report 7023491-9 (Version None)
Quarter: 2010Q3

REPORT INFORMATION
  Report Type: 
  Country: None (occurrence: None)
  Receive Date: 20100929
  Receipt Date: 20100929
  Transmission Date: 20110219
  Serious: Yes (Hospitalization)
  Sender: FDA-Public Use
  Company Number: None

PATIENT
  Age: 56 Year
  Sex: Male
  Weight: 56.246 kg

DRUGS (1)
  1. HYDRALAZINE HCL [Suspect]
     Indication: HYPERTENSION
     Dosage: 15 MG ONCE IV
     Route: 042
     Dates: start: 20100920, end: 20100920

REACTIONS (1)
  - ANGIOEDEMA [None]
